FAERS Safety Report 14979914 (Version 1)
Quarter: 2018Q2

REPORT INFORMATION
  Report Type: Spontaneous
  Country: US (occurrence: US)
  Receive Date: 20180516
  Receipt Date: 20180516
  Transmission Date: 20180711
  Serious: Yes (Other)
  Sender: FDA-Public Use
  Company Number: None

PATIENT
  Age: 34 Year
  Sex: Male
  Weight: 103.5 kg

DRUGS (8)
  1. ZANTAC [Concomitant]
     Active Substance: RANITIDINE HYDROCHLORIDE
  2. XLEAR ALLERGY NASAL SPRAY [Concomitant]
  3. COLONAZEPAM [Suspect]
     Active Substance: CLONAZEPAM
     Indication: ANXIETY
     Dosage: ?          QUANTITY:75 TABLET(S);?
     Route: 048
     Dates: start: 20180514, end: 20180514
  4. COLONAZEPAM [Suspect]
     Active Substance: CLONAZEPAM
     Indication: SEIZURE
     Dosage: ?          QUANTITY:75 TABLET(S);?
     Route: 048
     Dates: start: 20180514, end: 20180514
  5. BAYER MEN^S ONE A DAY MULTIVITAMIN [Concomitant]
  6. CLONAZEPAM. [Concomitant]
     Active Substance: CLONAZEPAM
  7. CLARITIN [Concomitant]
     Active Substance: LORATADINE
  8. DOCTORS BEST LUTEIN [Concomitant]

REACTIONS (5)
  - Product substitution issue [None]
  - Nausea [None]
  - Drug ineffective [None]
  - Product quality issue [None]
  - Vomiting [None]

NARRATIVE: CASE EVENT DATE: 20180514
